FAERS Safety Report 24448465 (Version 2)
Quarter: 2024Q4

REPORT INFORMATION
  Report Type: Spontaneous
  Country: US (occurrence: US)
  Receive Date: 20241017
  Receipt Date: 20241031
  Transmission Date: 20250115
  Serious: Yes (Other)
  Sender: TEVA
  Company Number: US-TEVA-VS-3253159

PATIENT
  Age: 71 Year
  Sex: Female

DRUGS (8)
  1. ALBUTEROL [Suspect]
     Active Substance: ALBUTEROL
     Indication: Asthma
     Route: 065
  2. ALBUTEROL [Suspect]
     Active Substance: ALBUTEROL
  3. ALBUTEROL [Suspect]
     Active Substance: ALBUTEROL
  4. ALBUTEROL [Suspect]
     Active Substance: ALBUTEROL
  5. PREDNISONE [Suspect]
     Active Substance: PREDNISONE
     Indication: Pneumocystis jirovecii pneumonia
     Route: 048
  6. SYMBICORT [Suspect]
     Active Substance: BUDESONIDE\FORMOTEROL FUMARATE DIHYDRATE
     Indication: Asthma
     Route: 065
  7. VORICONAZOLE [Concomitant]
     Active Substance: VORICONAZOLE
     Indication: Pneumocystis jirovecii pneumonia
     Route: 065
  8. SULFAMETHOXAZOLE\TRIMETHOPRIM [Concomitant]
     Active Substance: SULFAMETHOXAZOLE\TRIMETHOPRIM
     Indication: Pneumocystis jirovecii pneumonia
     Route: 065

REACTIONS (2)
  - Hyperglycaemia [Unknown]
  - Drug ineffective [Unknown]
